FAERS Safety Report 6362018-1 (Version None)
Quarter: 2009Q3

REPORT INFORMATION
  Report Type: 
  Country: None (occurrence: None)
  Receive Date: 20090918
  Receipt Date: 20090909
  Transmission Date: 20100115
  Serious: Yes (Hospitalization, Other)
  Sender: FDA-Public Use
  Company Number: CA-ABBOTT-09P-028-0591232-00

PATIENT
  Sex: Female

DRUGS (10)
  1. HUMIRA [Suspect]
     Indication: RHEUMATOID ARTHRITIS
     Route: 058
     Dates: start: 20010327, end: 20090717
  2. VITAMIN D [Concomitant]
     Indication: OSTEOPOROSIS
     Dates: start: 20030621
  3. ACTONEL [Concomitant]
     Indication: OSTEOPOROSIS
     Dates: start: 20030621
  4. CALCIUM [Concomitant]
     Indication: VITAMIN SUPPLEMENTATION
     Dates: start: 19980101
  5. OVAL [Concomitant]
     Indication: NAUSEA
     Dates: start: 20071113, end: 20071113
  6. ACETAMINOPHEN [Concomitant]
     Indication: PAIN
     Dates: start: 20090614
  7. TYLENOL (CAPLET) [Concomitant]
     Indication: RHEUMATOID ARTHRITIS
     Dates: start: 20061115
  8. FOLIC ACID [Concomitant]
     Indication: RHEUMATOID ARTHRITIS
     Dates: start: 20031222, end: 20050708
  9. FOLIC ACID [Concomitant]
     Dates: start: 20070714
  10. PENNSAID [Concomitant]
     Indication: RHEUMATOID ARTHRITIS
     Dates: start: 20061204, end: 20061207

REACTIONS (3)
  - CHILLS [None]
  - HYPERHIDROSIS [None]
  - PYREXIA [None]
